FAERS Safety Report 12157162 (Version 1)
Quarter: 2016Q1

REPORT INFORMATION
  Report Type: Spontaneous
  Country: US (occurrence: US)
  Receive Date: 20160308
  Receipt Date: 20160308
  Transmission Date: 20160526
  Serious: Yes (Other)
  Sender: FDA-Public Use
  Company Number: US-ALVOGEN-2016-ALVOGEN-022445

PATIENT
  Age: 54 Year
  Sex: Female

DRUGS (2)
  1. DOXORUBICIN [Suspect]
     Active Substance: DOXORUBICIN
     Indication: METAPLASTIC BREAST CARCINOMA
     Dosage: EVERY 28 DAYS
  2. DOXORUBICIN [Suspect]
     Active Substance: DOXORUBICIN
     Indication: METAPLASTIC BREAST CARCINOMA
     Dosage: EVERY 28 DAYS

REACTIONS (2)
  - Disease progression [Unknown]
  - Palmar-plantar erythrodysaesthesia syndrome [Recovering/Resolving]
